FAERS Safety Report 8572400-X (Version None)
Quarter: 2012Q3

REPORT INFORMATION
  Report Type: 
  Country: None (occurrence: None)
  Receive Date: 20120806
  Receipt Date: 20120727
  Transmission Date: 20120928
  Serious: Yes (Other)
  Sender: FDA-Public Use
  Company Number: JP-VERTEX PHARMACEUTICALS INC.-AE-2012-004969

PATIENT
  Age: 70 Year
  Sex: Female

DRUGS (14)
  1. REBETOL [Concomitant]
     Indication: HEPATITIS C
     Route: 048
     Dates: start: 20120211, end: 20120307
  2. TELAVIC (TELAPREVIR) [Suspect]
     Indication: HEPATITIS C
     Route: 048
     Dates: start: 20120211, end: 20120501
  3. REBETOL [Concomitant]
     Route: 048
     Dates: start: 20120322, end: 20120418
  4. FEROTYM [Concomitant]
     Route: 048
  5. PEGINTERFERON ALFA-2A [Concomitant]
     Indication: HEPATITIS C
     Route: 058
     Dates: start: 20120211, end: 20120301
  6. REBETOL [Concomitant]
     Route: 048
     Dates: start: 20120419, end: 20120604
  7. REBETOL [Concomitant]
     Route: 048
     Dates: start: 20120628, end: 20120719
  8. PEGINTERFERON ALFA-2A [Concomitant]
     Route: 058
     Dates: start: 20120308, end: 20120315
  9. REBETOL [Concomitant]
     Route: 048
     Dates: start: 20120308, end: 20120321
  10. CLARITIN REDITABS [Concomitant]
     Route: 048
  11. EPADEL S [Concomitant]
     Route: 048
  12. PEGINTERFERON ALFA-2A [Concomitant]
     Route: 058
     Dates: start: 20120322, end: 20120719
  13. REBETOL [Concomitant]
     Route: 048
     Dates: start: 20120605, end: 20120627
  14. LIVALO [Concomitant]
     Route: 048

REACTIONS (3)
  - PLATELET COUNT DECREASED [None]
  - ERYTHEMA [None]
  - ANAEMIA [None]
